FAERS Safety Report 13320983 (Version 1)
Quarter: 2017Q1

REPORT INFORMATION
  Report Type: Other
  Country: CN (occurrence: CN)
  Receive Date: 20170310
  Receipt Date: 20170310
  Transmission Date: 20170428
  Serious: Yes (Other)
  Sender: FDA-Public Use
  Company Number: CN-ASTELLAS-2017US009132

PATIENT
  Age: 33 Year
  Sex: Male

DRUGS (1)
  1. MICAFUNGIN [Suspect]
     Active Substance: MICAFUNGIN
     Indication: FUNGAL INFECTION
     Route: 042
     Dates: start: 20170112, end: 20170112

REACTIONS (6)
  - Eyelid oedema [Unknown]
  - Rash pruritic [Recovering/Resolving]
  - Blood pressure decreased [Unknown]
  - Off label use [Unknown]
  - Hyperthermia [Unknown]
  - Bone marrow failure [Unknown]

NARRATIVE: CASE EVENT DATE: 20170112
